FAERS Safety Report 22270454 (Version 1)
Quarter: 2023Q2

REPORT INFORMATION
  Report Type: Spontaneous
  Country: US (occurrence: None)
  Receive Date: 20230429
  Receipt Date: 20230429
  Transmission Date: 20230721
  Serious: Yes (Other)
  Sender: FDA-Public Use
  Company Number: None

PATIENT
  Age: 79 Year
  Sex: Male
  Weight: 95.4 kg

DRUGS (4)
  1. HEAD AND SHOULDERS COCONUT 2IN1 [Suspect]
     Active Substance: PYRITHIONE ZINC
     Indication: Dandruff
     Dosage: OTHER STRENGTH : OUNCE;?OTHER QUANTITY : 3 TABLESPOON(S);?OTHER FREQUENCY : AS NEEDED;?OTHER ROUTE :
     Route: 050
  2. Glucosamine Condrotin [Concomitant]
  3. Occulite [Concomitant]
  4. BIOTIN [Concomitant]
     Active Substance: BIOTIN

REACTIONS (4)
  - Burning sensation [None]
  - Pruritus [None]
  - Erythema [None]
  - Hypothermia [None]

NARRATIVE: CASE EVENT DATE: 20230131
